FAERS Safety Report 19511577 (Version 1)
Quarter: 2021Q3

REPORT INFORMATION
  Report Type: Other
  Country: CA (occurrence: CA)
  Receive Date: 20210709
  Receipt Date: 20210709
  Transmission Date: 20211014
  Serious: Yes (Death, Hospitalization, Other)
  Sender: FDA-Public Use
  Company Number: CA-PFIZER INC-2021772895

PATIENT

DRUGS (8)
  1. FILGRASTIM [Suspect]
     Active Substance: FILGRASTIM
     Indication: HAEMATOPOIETIC STEM CELL MOBILISATION
     Route: 058
  2. CYCLOPHOSPHAMIDE. [Concomitant]
     Active Substance: CYCLOPHOSPHAMIDE
     Indication: PLASMA CELL MYELOMA
     Route: 042
  3. BUSULFAN. [Concomitant]
     Active Substance: BUSULFAN
     Dosage: 3.2 MG/KG, 1X/DAY
     Route: 042
  4. MELPHALAN. [Concomitant]
     Active Substance: MELPHALAN
     Dosage: 200 MG/M2
     Route: 042
  5. DEXAMETHASONE. [Concomitant]
     Active Substance: DEXAMETHASONE
     Indication: PLASMA CELL MYELOMA
     Dosage: 40 MG
     Route: 048
  6. PLERIXAFOR [Concomitant]
     Active Substance: PLERIXAFOR
     Indication: HAEMATOPOIETIC STEM CELL MOBILISATION
     Dosage: 0.24 MG/KG
     Route: 058
  7. BORTEZOMIB. [Concomitant]
     Active Substance: BORTEZOMIB
     Indication: PLASMA CELL MYELOMA
  8. MELPHALAN. [Concomitant]
     Active Substance: MELPHALAN
     Dosage: 140 MG/M2
     Route: 042

REACTIONS (11)
  - Febrile neutropenia [Fatal]
  - Hyponatraemia [Fatal]
  - Infection [Fatal]
  - Pyrexia [Fatal]
  - Acute kidney injury [Fatal]
  - Treatment failure [Fatal]
  - Septic shock [Fatal]
  - Gastrointestinal disorder [Fatal]
  - Plasma cell myeloma [Fatal]
  - Neuropathy peripheral [Fatal]
  - Bone pain [Fatal]
